FAERS Safety Report 10343868 (Version 1)
Quarter: 2014Q3

REPORT INFORMATION
  Report Type: Spontaneous
  Country: US (occurrence: None)
  Receive Date: 20140725
  Receipt Date: 20140725
  Transmission Date: 20150326
  Serious: Yes (Death)
  Sender: FDA-Public Use
  Company Number: None

PATIENT
  Age: 51 Year
  Sex: Male
  Weight: 160 kg

DRUGS (1)
  1. ADENOSINE. [Suspect]
     Active Substance: ADENOSINE
     Indication: UNEVALUABLE EVENT
     Route: 042
     Dates: start: 20140708

REACTIONS (2)
  - Cardiac arrest [None]
  - Pulseless electrical activity [None]

NARRATIVE: CASE EVENT DATE: 20140707
